FAERS Safety Report 19057160 (Version 1)
Quarter: 2021Q1

REPORT INFORMATION
  Report Type: Spontaneous
  Country: CA (occurrence: CA)
  Receive Date: 20210325
  Receipt Date: 20210325
  Transmission Date: 20210420
  Serious: Yes (Other)
  Sender: FDA-Public Use
  Company Number: CA-PFIZER INC-2021314420

PATIENT
  Age: 45 Year
  Sex: Male
  Weight: 109 kg

DRUGS (2)
  1. METHOTREXATE SODIUM. [Suspect]
     Active Substance: METHOTREXATE SODIUM
     Dosage: 25 MG, WEEKLY
     Route: 058
  2. RUXIENCE [Concomitant]
     Active Substance: RITUXIMAB-PVVR
     Indication: GRANULOMATOSIS WITH POLYANGIITIS
     Dosage: 1000 MG EVERY 6 MONTHS X 2 DOSES
     Route: 041

REACTIONS (5)
  - Pulmonary haemorrhage [Recovered/Resolved]
  - Body mass index increased [Unknown]
  - Arthritis [Recovering/Resolving]
  - Off label use [Unknown]
  - Product use issue [Unknown]
